FAERS Safety Report 6910257-0 (Version None)
Quarter: 2010Q3

REPORT INFORMATION
  Report Type: 
  Country: None (occurrence: None)
  Receive Date: 20100806
  Receipt Date: 20100802
  Transmission Date: 20110219
  Serious: Yes (Life-Threatening)
  Sender: FDA-Public Use
  Company Number: JP-ASTRAZENECA-2010SE30915

PATIENT
  Age: 47 Year
  Sex: Female

DRUGS (10)
  1. DIPRIVAN [Suspect]
     Indication: SEDATION
     Route: 042
     Dates: start: 20100203, end: 20100207
  2. PRECEDEX [Suspect]
     Indication: SEDATION
     Route: 041
     Dates: start: 20100203, end: 20100205
  3. SERENACE [Suspect]
     Indication: SEDATION
     Route: 041
     Dates: start: 20100207, end: 20100208
  4. FENTANYL [Concomitant]
     Indication: SEDATION
     Route: 041
     Dates: start: 20100203, end: 20100205
  5. ZOSYN [Concomitant]
     Indication: INFECTION
     Route: 042
     Dates: start: 20100203, end: 20100206
  6. TARGOCID [Concomitant]
     Route: 042
     Dates: start: 20100204, end: 20100205
  7. ROCEPHIN [Concomitant]
     Route: 042
     Dates: start: 20100206, end: 20100208
  8. ADRENAL HORMONE PREPARATIONS [Concomitant]
     Indication: SHOCK
  9. POLYGAM S/D [Concomitant]
     Indication: INFECTION
  10. BETAMETHASONE [Concomitant]
     Indication: RHEUMATOID ARTHRITIS
     Route: 048

REACTIONS (1)
  - NEUROLEPTIC MALIGNANT SYNDROME [None]
